FAERS Safety Report 4742302-5 (Version None)
Quarter: 2005Q3

REPORT INFORMATION
  Report Type: 
  Country: None (occurrence: None)
  Receive Date: 20050811
  Receipt Date: 20050404
  Transmission Date: 20060218
  Serious: No
  Sender: FDA-Public Use
  Company Number: US-GLAXOSMITHKLINE-A0552645A

PATIENT
  Age: 48 Year
  Sex: Male

DRUGS (3)
  1. PAXIL [Suspect]
     Indication: DEPRESSION
     Dosage: 25MG PER DAY
     Route: 048
     Dates: start: 20031001
  2. SERZONE [Concomitant]
  3. CELEBREX [Concomitant]
     Indication: LIGAMENT INJURY
     Dates: start: 20050301

REACTIONS (1)
  - DEPRESSION [None]
